FAERS Safety Report 12594867 (Version 1)
Quarter: 2016Q3

REPORT INFORMATION
  Report Type: Spontaneous
  Country: GB (occurrence: GB)
  Receive Date: 20160726
  Receipt Date: 20160726
  Transmission Date: 20161109
  Serious: Yes (Life-Threatening, Hospitalization)
  Sender: FDA-Public Use
  Company Number: GB-PFIZER INC-2016347759

PATIENT
  Age: 10 Month
  Sex: Female
  Weight: 6.3 kg

DRUGS (24)
  1. CLONIDINE. [Concomitant]
     Active Substance: CLONIDINE
     Dates: start: 20160625
  2. SODIUM BICARBONATE. [Concomitant]
     Active Substance: SODIUM BICARBONATE
     Dates: start: 20160625
  3. PANTOPRAZOLE [Concomitant]
     Active Substance: PANTOPRAZOLE SODIUM
     Dates: start: 20160625
  4. MORPHINE [Concomitant]
     Active Substance: MORPHINE
     Route: 042
     Dates: start: 20160625
  5. ABIDEC /00266401/ [Concomitant]
     Dates: start: 20160625
  6. PROGRAF [Concomitant]
     Active Substance: TACROLIMUS\TACROLIMUS ANHYDROUS
     Dates: start: 20160625
  7. PIRITON [Concomitant]
     Active Substance: CHLORPHENIRAMINE MALEATE
     Dates: start: 20160625
  8. DALTEPARIN [Concomitant]
     Active Substance: DALTEPARIN
     Dates: start: 20160625
  9. EPOETIN BETA [Concomitant]
     Active Substance: ERYTHROPOIETIN
     Dates: start: 20160625
  10. MIDAZOLAM [Concomitant]
     Active Substance: MIDAZOLAM\MIDAZOLAM HYDROCHLORIDE
     Dates: start: 20160625
  11. ORAMORPH [Concomitant]
     Active Substance: MORPHINE SULFATE
     Dates: start: 20160625
  12. ALIMEMAZINE [Concomitant]
     Active Substance: TRIMEPRAZINE
     Dates: start: 20160625
  13. FOLIC ACID. [Concomitant]
     Active Substance: FOLIC ACID
     Dates: start: 20160625
  14. MEROPENEM. [Concomitant]
     Active Substance: MEROPENEM
     Dates: start: 20160625
  15. NYSTATIN. [Concomitant]
     Active Substance: NYSTATIN
     Dates: start: 20160625
  16. CHLORHEXIDINE [Concomitant]
     Active Substance: CHLORHEXIDINE
     Dates: start: 20160625
  17. METHYLPREDNISOLONE. [Concomitant]
     Active Substance: METHYLPREDNISOLONE
     Dates: start: 20160625
  18. VITAMIN K [Concomitant]
     Active Substance: PHYTONADIONE
     Dates: start: 20160625
  19. RANITIDINE COX [Concomitant]
     Dates: start: 20160625
  20. BASILIXIMAB [Concomitant]
     Active Substance: BASILIXIMAB
     Route: 042
     Dates: start: 20160625
  21. SODIUM CHLORIDE. [Suspect]
     Active Substance: SODIUM CHLORIDE
     Dosage: 5 ML,  FLUSH
     Route: 042
     Dates: start: 20160703, end: 20160703
  22. WOCKHARDT UK PIPERACILLIN AND TAZOBACTAM [Suspect]
     Active Substance: PIPERACILLIN SODIUM\TAZOBACTAM SODIUM
     Indication: PYREXIA
     Dosage: 570 MG
     Route: 042
     Dates: start: 20160703, end: 20160703
  23. VECURONIUM [Concomitant]
     Active Substance: VECURONIUM BROMIDE
     Dates: start: 20160625
  24. PARACETAMOL [Concomitant]
     Active Substance: ACETAMINOPHEN
     Dates: start: 20160625

REACTIONS (5)
  - Anaphylactic reaction [Recovered/Resolved]
  - Product substitution issue [Recovered/Resolved]
  - Hypotonia [None]
  - Bradycardia [None]
  - Respiratory failure [None]

NARRATIVE: CASE EVENT DATE: 20160703
